FAERS Safety Report 21655369 (Version 3)
Quarter: 2024Q1

REPORT INFORMATION
  Report Type: Spontaneous
  Country: AU (occurrence: AU)
  Receive Date: 20221129
  Receipt Date: 20240308
  Transmission Date: 20240410
  Serious: Yes (Other)
  Sender: FDA-Public Use
  Company Number: AU-ABBVIE-4215722

PATIENT
  Age: 71 Year
  Sex: Male

DRUGS (1)
  1. SKYRIZI [Suspect]
     Active Substance: RISANKIZUMAB-RZAA
     Indication: Psoriasis
     Route: 058

REACTIONS (8)
  - Pancytopenia [Unknown]
  - Memory impairment [Unknown]
  - Cognitive disorder [Unknown]
  - Dementia [Unknown]
  - Emotional disorder [Unknown]
  - Emotional distress [Unknown]
  - Confusional state [Unknown]
  - Psoriasis [Unknown]

NARRATIVE: CASE EVENT DATE: 20220325
